FAERS Safety Report 8908377 (Version 2)
Quarter: 2012Q4

REPORT INFORMATION
  Report Type: 
  Country: AU (occurrence: AU)
  Receive Date: 20121114
  Receipt Date: 20121206
  Transmission Date: 20130627
  Serious: Yes (Hospitalization)
  Sender: FDA-Public Use
  Company Number: PHHY2012AU104157

PATIENT
  Age: 41 None
  Sex: Female

DRUGS (7)
  1. CLOZARIL [Suspect]
     Indication: SCHIZOPHRENIA
     Dosage: 400 mg,
     Route: 048
     Dates: start: 19971024
  2. CLOZARIL [Suspect]
     Dosage: 400 mg, daily
     Route: 048
     Dates: start: 2007
  3. RISPERIDONE [Concomitant]
     Indication: SCHIZOPHRENIA
     Dosage: 3 mg, BID
     Route: 048
  4. AMISULPRIDE [Concomitant]
     Indication: SCHIZOPHRENIA
     Dosage: 600 mg, (200 mg mane and 400 mg nocte)
     Route: 048
  5. BENZTROPINE [Concomitant]
     Dosage: 2 mg, mane
     Route: 048
  6. SELENIUM [Concomitant]
     Dosage: 50 mg, mane
     Route: 048
  7. ZUCLOPENTHIXOL DECANOATE [Concomitant]
     Indication: SCHIZOPHRENIA
     Dosage: 500 mg fortnightly
     Route: 030

REACTIONS (6)
  - Troponin increased [Recovered/Resolved]
  - Dyspnoea [Recovered/Resolved]
  - Palpitations [Recovered/Resolved]
  - Left atrial dilatation [Unknown]
  - Pericardial effusion [Unknown]
  - Electrocardiogram QT prolonged [Unknown]
